FAERS Safety Report 21274569 (Version 1)
Quarter: 2022Q3

REPORT INFORMATION
  Report Type: Spontaneous
  Country: US (occurrence: US)
  Receive Date: 20220831
  Receipt Date: 20220831
  Transmission Date: 20221027
  Serious: Yes (Other)
  Sender: FDA-Public Use
  Company Number: US-AMERICAN REGENT INC-2022001695

PATIENT
  Sex: Female
  Weight: 88.889 kg

DRUGS (6)
  1. FERRIC CARBOXYMALTOSE [Suspect]
     Active Substance: FERRIC CARBOXYMALTOSE
     Indication: Iron deficiency anaemia
     Dosage: 750 MILLIGRAM IN 100 ML OF NS
     Route: 042
     Dates: start: 20181026, end: 20181026
  2. FERRIC CARBOXYMALTOSE [Suspect]
     Active Substance: FERRIC CARBOXYMALTOSE
     Dosage: 750 MILLIGRAM IN 100 ML OF NS
     Route: 042
     Dates: start: 20181109, end: 20181109
  3. FERRIC CARBOXYMALTOSE [Suspect]
     Active Substance: FERRIC CARBOXYMALTOSE
     Dosage: 750 MILLIGRAM IN 100 ML OF NS
     Route: 042
     Dates: start: 20200219, end: 20200219
  4. FERRIC CARBOXYMALTOSE [Suspect]
     Active Substance: FERRIC CARBOXYMALTOSE
     Dosage: 750 MILLIGRAM IN 100 ML OF NS
     Route: 042
     Dates: start: 20200316, end: 20200316
  5. CRYSELLE [Concomitant]
     Active Substance: ETHINYL ESTRADIOL\NORGESTREL
     Indication: Heavy menstrual bleeding
     Dosage: 0.3-30 MILLIGRAM TABLET
     Route: 048
  6. AYGESTIN [Concomitant]
     Active Substance: NORETHINDRONE ACETATE
     Indication: Heavy menstrual bleeding
     Dosage: 5 MILLIGRAM TABLET
     Route: 048
     Dates: start: 20180910

REACTIONS (1)
  - Hypophosphataemia [Unknown]
